FAERS Safety Report 26059354 (Version 1)
Quarter: 2025Q4

REPORT INFORMATION
  Report Type: Spontaneous
  Country: US (occurrence: None)
  Receive Date: 20251117
  Receipt Date: 20251117
  Transmission Date: 20260118
  Serious: Yes (Death)
  Sender: FDA-CTU
  Company Number: None

PATIENT
  Age: 66 Year
  Sex: Male

DRUGS (11)
  1. ABIRATERONE [Suspect]
     Active Substance: ABIRATERONE
     Indication: Prostate cancer
     Dosage: 1000MG DAILY ORAL ?
     Route: 048
     Dates: start: 20250523, end: 20251108
  2. ALBUTEROL HFA INH 8.58-200 PUFFS [Concomitant]
  3. DEXAMETASONE 2 AND 4MG TABLETS [Concomitant]
  4. DICLOFENAC 1 % GEL [Concomitant]
  5. DRONABINOL [Concomitant]
     Active Substance: DRONABINOL
  6. HYDROCORTISONE [Concomitant]
     Active Substance: HYDROCORTISONE
  7. LISINOPRIL [Concomitant]
     Active Substance: LISINOPRIL
  8. METHADONE [Concomitant]
     Active Substance: METHADONE HYDROCHLORIDE
  9. METOPROLOL SUCCINATE ER 25MG TABLETS [Concomitant]
  10. NAMENDA 1 0MG TABLETS [Concomitant]
  11. SERTRALINE 1001v1G TABLETS [Concomitant]

REACTIONS (1)
  - Fall [None]

NARRATIVE: CASE EVENT DATE: 20251108
